FAERS Safety Report 20946658 (Version 4)
Quarter: 2023Q4

REPORT INFORMATION
  Report Type: Spontaneous
  Country: KR (occurrence: KR)
  Receive Date: 20220610
  Receipt Date: 20231106
  Transmission Date: 20240109
  Serious: Yes (Death, Other)
  Sender: FDA-Public Use
  Company Number: KR-PHARMAESSENTIA CORPORATION-KR-2022-PEC-000640

PATIENT
  Sex: Male

DRUGS (2)
  1. BESREMI [Suspect]
     Active Substance: ROPEGINTERFERON ALFA-2B-NJFT
     Indication: Erdheim-Chester disease
     Dosage: 250 MCG
     Route: 058
     Dates: start: 20220511
  2. MINIRIN [Concomitant]
     Active Substance: DESMOPRESSIN ACETATE
     Indication: Nocturia
     Route: 065

REACTIONS (6)
  - Death [Fatal]
  - Loss of consciousness [Unknown]
  - Hyperventilation [Unknown]
  - Pupillary reflex impaired [Unknown]
  - Confusional state [Unknown]
  - Off label use [Unknown]

NARRATIVE: CASE EVENT DATE: 20220511
